FAERS Safety Report 24108929 (Version 1)
Quarter: 2024Q3

REPORT INFORMATION
  Report Type: Report from Study
  Country: CA (occurrence: None)
  Receive Date: 20240718
  Receipt Date: 20240718
  Transmission Date: 20241016
  Serious: Yes (Other)
  Sender: ASTRAZENECA
  Company Number: 2021A802842

PATIENT
  Sex: Female

DRUGS (6)
  1. FASENRA [Suspect]
     Active Substance: BENRALIZUMAB
     Indication: Asthma
     Route: 058
     Dates: start: 20210521
  2. BRICANYL [Concomitant]
     Active Substance: TERBUTALINE SULFATE
     Dosage: 0.5MG, 1 INH QID PRN
     Route: 065
  3. ALVESCO [Concomitant]
     Active Substance: CICLESONIDE
     Dosage: 200MCG, 2 INH ID
     Route: 065
  4. SPIRIVA [Concomitant]
     Active Substance: TIOTROPIUM BROMIDE MONOHYDRATE
     Dosage: 2.5MCG, 2 INH ID
     Route: 065
  5. SYMBICORT [Concomitant]
     Active Substance: BUDESONIDE\FORMOTEROL FUMARATE DIHYDRATE
     Dosage: 200MCG, 2 INH BID
     Route: 065
  6. NUCALA [Concomitant]
     Active Substance: MEPOLIZUMAB

REACTIONS (1)
  - Breast cancer [Unknown]
